FAERS Safety Report 9030554 (Version 6)
Quarter: 2014Q1

REPORT INFORMATION
  Report Type: Spontaneous
  Country: US (occurrence: US)
  Receive Date: 20130122
  Receipt Date: 20140128
  Transmission Date: 20141002
  Serious: Yes (Hospitalization, Other)
  Sender: FDA-Public Use
  Company Number: US-009507513-1301USA009741

PATIENT
  Sex: Female
  Weight: 92.97 kg

DRUGS (12)
  1. FOSAMAX [Suspect]
     Indication: OSTEOPOROSIS
     Dosage: 70 MG, QW
     Route: 048
     Dates: start: 200210, end: 201012
  2. PREDNISONE [Concomitant]
     Indication: RENAL TRANSPLANT
     Dosage: 5 MG, QD
     Dates: start: 1996
  3. ESOMEPRAZOLE [Concomitant]
     Dosage: UNK
     Dates: start: 2000, end: 2012
  4. CYCLOSPORINE [Concomitant]
     Indication: RENAL TRANSPLANT
     Dosage: 75 MG, BID
     Dates: start: 1996
  5. ATACAND [Concomitant]
     Indication: HYPERTENSION
     Dosage: 16 MG, UNK
     Dates: start: 1996
  6. NEXIUM [Concomitant]
     Indication: PEPTIC ULCER
     Dosage: 40 MG, QD
     Dates: start: 2000
  7. ATENOLOL [Concomitant]
     Indication: HYPERTENSION
     Dosage: 50 MG, QD
  8. TENORMIN [Concomitant]
     Indication: HYPERTENSION
     Dosage: UNK
     Dates: start: 1996
  9. OS-CAL + D [Concomitant]
     Indication: OSTEOPOROSIS
  10. BEELITH TABLETS [Concomitant]
     Dosage: 320 MG, QD
  11. PREMARIN [Concomitant]
     Dosage: 0.625 MG, M-W-F
  12. ALLOPURINOL [Concomitant]
     Indication: GOUT
     Dosage: 100 MG, QD
     Dates: start: 20040511

REACTIONS (49)
  - Femur fracture [Unknown]
  - Femur fracture [Unknown]
  - Open reduction of fracture [Unknown]
  - Intramedullary rod insertion [Unknown]
  - Hip fracture [Unknown]
  - Intramedullary rod insertion [Unknown]
  - Skin cancer [Unknown]
  - Vaginal cancer [Unknown]
  - Renal failure chronic [Not Recovered/Not Resolved]
  - Renal failure acute [Recovered/Resolved]
  - Colon cancer [Unknown]
  - Colectomy [Unknown]
  - Gastroenteritis [Unknown]
  - Rib fracture [Unknown]
  - Medical device removal [Unknown]
  - Anxiety [Unknown]
  - Depression [Unknown]
  - Vitamin D deficiency [Unknown]
  - Hyperparathyroidism secondary [Unknown]
  - Angiopathy [Unknown]
  - Pain [Unknown]
  - Neuropathy peripheral [Unknown]
  - Osteoarthritis [Unknown]
  - Supraventricular tachycardia [Unknown]
  - Iron deficiency anaemia [Unknown]
  - Hypercalcaemia [Unknown]
  - Fall [Unknown]
  - Cellulitis [Unknown]
  - Anaemia of chronic disease [Unknown]
  - Peripheral artery stenosis [Unknown]
  - Pharyngo-oesophageal diverticulum [Unknown]
  - Pleural effusion [Unknown]
  - Hiatus hernia [Unknown]
  - Cardiomegaly [Unknown]
  - Pulmonary fibrosis [Unknown]
  - Atelectasis [Unknown]
  - Osteoarthritis [Unknown]
  - Hypotension [Recovered/Resolved]
  - Depression [Recovered/Resolved]
  - Osteoarthritis [Unknown]
  - Uraemic neuropathy [Unknown]
  - Gait disturbance [Unknown]
  - Dental implantation [Unknown]
  - Osteopenia [Unknown]
  - Local swelling [Unknown]
  - Muscle spasms [Unknown]
  - Gastrooesophageal reflux disease [Unknown]
  - Dysphagia [Unknown]
  - Arthralgia [Unknown]
